FAERS Safety Report 9547040 (Version 2)
Quarter: 2013Q4

REPORT INFORMATION
  Report Type: Spontaneous
  Country: US (occurrence: US)
  Receive Date: 20130924
  Receipt Date: 20131009
  Transmission Date: 20140711
  Serious: Yes (Other)
  Sender: FDA-Public Use
  Company Number: US-ASTRAZENECA-2013SE69532

PATIENT
  Age: 59 Year
  Sex: Female
  Weight: 76.2 kg

DRUGS (8)
  1. ATACAND [Suspect]
     Indication: HYPERTENSION
     Route: 048
     Dates: start: 2005
  2. ATACAND [Suspect]
     Indication: HYPERTENSION
     Dosage: 16 MG, UNKNOWN FREQUENCY, GENERIC
     Route: 048
     Dates: start: 2011
  3. ATACAND [Suspect]
     Indication: HYPERTENSION
     Route: 048
  4. ATACAND [Suspect]
     Indication: HYPERTENSION
     Route: 048
     Dates: start: 20130903
  5. METOPROLOL TARTRATE [Concomitant]
     Indication: DILATATION VENTRICULAR
     Dates: start: 201205
  6. BABY ASPIRIN [Concomitant]
  7. FISH OIL [Concomitant]
     Dosage: TWO AFTER MEAL
  8. VITAMIN D WITH CALCIUM [Concomitant]

REACTIONS (6)
  - Dilatation ventricular [Unknown]
  - Adverse event [Unknown]
  - Heart rate increased [Unknown]
  - Diarrhoea [Unknown]
  - Joint injury [Unknown]
  - Fatigue [Unknown]
